FAERS Safety Report 12920714 (Version 1)
Quarter: 2016Q4

REPORT INFORMATION
  Report Type: Report from Study
  Country: JP (occurrence: JP)
  Receive Date: 20161108
  Receipt Date: 20161108
  Transmission Date: 20170207
  Serious: Yes (Other)
  Sender: FDA-Public Use
  Company Number: JP-ASTELLAS-2015JP013118

PATIENT
  Age: 4 Year
  Sex: Male

DRUGS (6)
  1. TACROLIMUS. [Interacting]
     Active Substance: TACROLIMUS
     Dosage: 0.7 MG, ONCE DAILY
     Route: 065
     Dates: start: 20150423, end: 20150602
  2. TACROLIMUS. [Interacting]
     Active Substance: TACROLIMUS
     Indication: PROPHYLAXIS AGAINST GRAFT VERSUS HOST DISEASE
     Dosage: 0.7 MG, ONCE DAILY
     Route: 048
     Dates: end: 20150423
  3. PREDONINE [Interacting]
     Active Substance: PREDNISOLONE\PREDNISOLONE ACETATE\PREDNISOLONE SODIUM SUCCINATE
     Indication: PRODUCT USED FOR UNKNOWN INDICATION
     Route: 048
     Dates: start: 20150304
  4. TACROLIMUS. [Suspect]
     Active Substance: TACROLIMUS
     Indication: PROPHYLAXIS AGAINST GRAFT VERSUS HOST DISEASE
     Dosage: 0.7 MG, ONCE DAILY
     Route: 065
     Dates: start: 20150304, end: 20150306
  5. TACROLIMUS. [Interacting]
     Active Substance: TACROLIMUS
     Dosage: 0.7 MG, ONCE DAILY
     Route: 048
     Dates: start: 20150603
  6. CELLCEPT [Suspect]
     Active Substance: MYCOPHENOLATE MOFETIL\MYCOPHENOLATE MOFETIL HYDROCHLORIDE
     Indication: PRODUCT USED FOR UNKNOWN INDICATION
     Route: 048
     Dates: start: 20150304

REACTIONS (3)
  - Hypomagnesaemia [Recovering/Resolving]
  - Histiocytosis haematophagic [Unknown]
  - Drug interaction [Unknown]

NARRATIVE: CASE EVENT DATE: 20150317
